FAERS Safety Report 9333429 (Version 2)
Quarter: 2013Q4

REPORT INFORMATION
  Report Type: Spontaneous
  Country: US (occurrence: US)
  Receive Date: 20130606
  Receipt Date: 20131023
  Transmission Date: 20140711
  Serious: Yes (Hospitalization, Other)
  Sender: FDA-Public Use
  Company Number: US-B.I. PHARMACEUTICALS,INC./RIDGEFIELD-2013-BI-15773BP

PATIENT
  Age: 82 Year
  Sex: Male
  Weight: 81.65 kg

DRUGS (6)
  1. PRADAXA [Suspect]
     Indication: ATRIAL FIBRILLATION
     Dosage: 300 MG
     Route: 048
     Dates: start: 20101230, end: 20120129
  2. POTASSIUM CHLORIDE [Concomitant]
     Dosage: 20 MEQ
     Route: 048
  3. DIOVAN [Concomitant]
     Dosage: 80 MG
     Route: 048
  4. LASIX [Concomitant]
     Dosage: 40 MG
     Route: 048
  5. CARVEDILOL [Concomitant]
     Dosage: 25 MG
  6. PLAVIX [Concomitant]
     Dates: end: 201110

REACTIONS (6)
  - Haematuria [Unknown]
  - Upper gastrointestinal haemorrhage [Unknown]
  - Haemorrhagic anaemia [Unknown]
  - Hepatic cirrhosis [Unknown]
  - Anaemia macrocytic [Unknown]
  - Thrombocytopenia [Unknown]
